FAERS Safety Report 17934462 (Version 1)
Quarter: 2020Q2

REPORT INFORMATION
  Report Type: Spontaneous
  Country: US (occurrence: US)
  Receive Date: 20200623
  Receipt Date: 20200623
  Transmission Date: 20200714
  Serious: Yes (Death)
  Sender: FDA-Public Use
  Company Number: None

PATIENT
  Age: 71 Year
  Sex: Female

DRUGS (1)
  1. AMBRISENTAN TAB  5MG [Suspect]
     Active Substance: AMBRISENTAN
     Route: 048
     Dates: start: 20200619

REACTIONS (1)
  - Death [None]

NARRATIVE: CASE EVENT DATE: 20190619
